FAERS Safety Report 14719791 (Version 2)
Quarter: 2018Q4

REPORT INFORMATION
  Report Type: Spontaneous
  Country: CN (occurrence: CN)
  Receive Date: 20180405
  Receipt Date: 20181130
  Transmission Date: 20190204
  Serious: Yes (Hospitalization, Other)
  Sender: FDA-Public Use
  Company Number: CN-ELI_LILLY_AND_COMPANY-CN201804000579

PATIENT
  Age: 51 Year
  Sex: Male

DRUGS (4)
  1. HUMULIN R [Suspect]
     Active Substance: INSULIN HUMAN
     Dosage: 8 IU, DAILY (AT NOON)
     Route: 058
     Dates: start: 2008, end: 2017
  2. HUMULIN R [Suspect]
     Active Substance: INSULIN HUMAN
     Dosage: 11 IU, EACH EVENING (NIGHT)
     Route: 058
     Dates: start: 2008, end: 2017
  3. HUMULIN R [Suspect]
     Active Substance: INSULIN HUMAN
     Dosage: 15 IU, EACH EVENING (BEFORE SLEEP)
     Route: 058
     Dates: start: 2008, end: 2017
  4. HUMULIN R [Suspect]
     Active Substance: INSULIN HUMAN
     Indication: TYPE 2 DIABETES MELLITUS
     Dosage: 15 IU, EACH MORNING
     Route: 058
     Dates: start: 2008, end: 2017

REACTIONS (4)
  - Cerebral infarction [Unknown]
  - Cerebral infarction [Unknown]
  - Cerebral infarction [Unknown]
  - Blood glucose abnormal [Unknown]

NARRATIVE: CASE EVENT DATE: 2005
